FAERS Safety Report 5946949-X (Version None)
Quarter: 2008Q4

REPORT INFORMATION
  Report Type: 
  Country: None (occurrence: None)
  Receive Date: 20081110
  Receipt Date: 20081103
  Transmission Date: 20090506
  Serious: Yes (Life-Threatening, Hospitalization)
  Sender: FDA-Public Use
  Company Number: US-AVENTIS-200816009EU

PATIENT
  Age: 52 Year
  Sex: Male

DRUGS (7)
  1. FUROSEMIDE [Suspect]
  2. SPIRONOLACTONE [Suspect]
  3. IBUPROFEN TABLETS [Suspect]
     Indication: HEADACHE
  4. CARVEDILOL [Suspect]
  5. LISINOPRIL [Suspect]
  6. DEXAMETHASONE [Suspect]
  7. LIDOCAINE [Suspect]
     Indication: ORAL PAIN

REACTIONS (2)
  - COMA [None]
  - TOXIC EPIDERMAL NECROLYSIS [None]
